FAERS Safety Report 4390575-3 (Version None)
Quarter: 2004Q2

REPORT INFORMATION
  Report Type: 
  Country: None (occurrence: None)
  Receive Date: 20040630
  Receipt Date: 20040615
  Transmission Date: 20050107
  Serious: Yes (Hospitalization)
  Sender: FDA-Public Use
  Company Number: THYR-10064

PATIENT
  Age: 73 Year
  Sex: Female

DRUGS (3)
  1. THYROGEN [Suspect]
     Dosage: 0.9 MG DAILY IM
     Route: 030
     Dates: start: 20021119, end: 20021120
  2. PREVISCAN [Concomitant]
  3. LEVOTHYROXINE SODIUM [Concomitant]

REACTIONS (17)
  - ANTINUCLEAR ANTIBODY POSITIVE [None]
  - ARTHRALGIA [None]
  - ASTHENIA [None]
  - BONE LESION [None]
  - DRUG INEFFECTIVE [None]
  - DYSPNOEA [None]
  - HEADACHE [None]
  - INFLAMMATION [None]
  - MOVEMENT DISORDER [None]
  - MYALGIA [None]
  - OEDEMA PERIPHERAL [None]
  - PAIN IN EXTREMITY [None]
  - PARANEOPLASTIC SYNDROME [None]
  - PELVIC PAIN [None]
  - POLYARTHRITIS [None]
  - POLYMYALGIA RHEUMATICA [None]
  - PYREXIA [None]
